FAERS Safety Report 5142124-X (Version None)
Quarter: 2006Q4

REPORT INFORMATION
  Report Type: 
  Country: None (occurrence: None)
  Receive Date: 20061030
  Receipt Date: 20061030
  Transmission Date: 20070319
  Serious: Yes (Hospitalization)
  Sender: FDA-Public Use
  Company Number: None

PATIENT

DRUGS (3)
  1. CARDIZEM SR [Suspect]
     Dosage: CAPSULE, EXTENDED RELEASE
  2. DILTIAZEM HYDROCHLORIDE [Suspect]
     Dosage: CAPSULE, EXTENDED RELEASE
  3. CARDIZEM LA [Suspect]
     Dosage: TABLET, EXTENDED RELEASE

REACTIONS (3)
  - INTERCEPTED DRUG DISPENSING ERROR [None]
  - MEDICATION ERROR [None]
  - PHARMACEUTICAL PRODUCT COMPLAINT [None]
